FAERS Safety Report 23739065 (Version 2)
Quarter: 2025Q2

REPORT INFORMATION
  Report Type: Spontaneous
  Country: BR (occurrence: BR)
  Receive Date: 20240413
  Receipt Date: 20250428
  Transmission Date: 20250716
  Serious: No
  Sender: CELLTRION
  Company Number: BR-CELLTRION INC.-2024BR008516

PATIENT

DRUGS (10)
  1. INFLIXIMAB [Suspect]
     Active Substance: INFLIXIMAB
     Indication: Ankylosing spondylitis
     Dates: start: 202212
  2. INFLIXIMAB [Suspect]
     Active Substance: INFLIXIMAB
     Route: 042
     Dates: start: 20230113
  3. INFLIXIMAB [Suspect]
     Active Substance: INFLIXIMAB
     Route: 042
     Dates: start: 20250408
  4. AMITRIPTYLINE [Concomitant]
     Active Substance: AMITRIPTYLINE
     Indication: Ankylosing spondylitis
     Route: 048
  5. METFORMIN [Concomitant]
     Active Substance: METFORMIN HYDROCHLORIDE
     Indication: Diabetes mellitus
     Route: 048
  6. TRAMADOL [Concomitant]
     Active Substance: TRAMADOL
  7. MELOXICAM [Concomitant]
     Active Substance: MELOXICAM
  8. PREGABALIN [Concomitant]
     Active Substance: PREGABALIN
  9. NIMESULIDE [Concomitant]
     Active Substance: NIMESULIDE
  10. DIPYRONE [Concomitant]
     Active Substance: DIPYRONE

REACTIONS (1)
  - Therapeutic response shortened [Unknown]
